FAERS Safety Report 17224695 (Version 1)
Quarter: 2019Q4

REPORT INFORMATION
  Report Type: Spontaneous
  Country: US (occurrence: US)
  Receive Date: 20191209
  Receipt Date: 20191209
  Transmission Date: 20200122
  Serious: Yes (Hospitalization)
  Sender: FDA-Public Use
  Company Number: None

PATIENT
  Age: 71 Year
  Sex: Male

DRUGS (3)
  1. WARFARIN (WARFARIN NA (EXELAN) 2MG TAB) [Suspect]
     Active Substance: WARFARIN
     Indication: DEEP VEIN THROMBOSIS
     Dates: start: 20121022
  2. WARFARIN (WARFARIN NA (EXELAN) 2MG TAB) [Suspect]
     Active Substance: WARFARIN
     Indication: CEREBROVASCULAR ACCIDENT
     Dates: start: 20121022
  3. WARFARIN (WARFARIN NA (EXELAN) 2MG TAB) [Suspect]
     Active Substance: WARFARIN
     Indication: ATRIAL FIBRILLATION
     Dates: start: 20121022

REACTIONS (2)
  - Gastric haemorrhage [None]
  - Abdominal wall haematoma [None]

NARRATIVE: CASE EVENT DATE: 20191011
